FAERS Safety Report 7231606-2 (Version None)
Quarter: 2011Q1

REPORT INFORMATION
  Report Type: 
  Country: None (occurrence: None)
  Receive Date: 20110118
  Receipt Date: 20110112
  Transmission Date: 20110831
  Serious: Yes (Other)
  Sender: FDA-Public Use
  Company Number: GB-AMGEN-GBRSP2011001941

PATIENT

DRUGS (4)
  1. ARANESP [Suspect]
     Dosage: 20 A?G, QWK
     Route: 058
     Dates: start: 20101011, end: 20101202
  2. ARANESP [Suspect]
     Dosage: 20 A?G, Q2WK
     Route: 058
     Dates: start: 20101202, end: 20101207
  3. INSULIN [Concomitant]
  4. ARANESP [Suspect]
     Indication: PRODUCT USED FOR UNKNOWN INDICATION
     Dosage: 20 A?G, Q2WK
     Route: 058
     Dates: start: 20100624, end: 20101011

REACTIONS (8)
  - DYSSTASIA [None]
  - MULTIPLE ALLERGIES [None]
  - PAIN OF SKIN [None]
  - HEADACHE [None]
  - BLOOD PRESSURE INCREASED [None]
  - PRURITUS [None]
  - VISION BLURRED [None]
  - HYPOAESTHESIA [None]
